FAERS Safety Report 8757527 (Version 1)
Quarter: 2012Q4

REPORT INFORMATION
  Report Type: 
  Country: US (occurrence: US)
  Receive Date: 20120828
  Receipt Date: 20120828
  Transmission Date: 20130627
  Serious: No
  Sender: FDA-Public Use
  Company Number: US-TEVA-339129USA

PATIENT
  Age: 65 Year
  Sex: Female

DRUGS (4)
  1. METOCLOPRAMIDE [Suspect]
     Indication: NAUSEA
     Dates: start: 20120412
  2. DOCETAXEL [Suspect]
     Indication: BREAST CANCER
     Dosage: every cycle
     Route: 041
     Dates: start: 20120412, end: 20120412
  3. ONDANSETRON [Suspect]
     Indication: NAUSEA
     Dates: start: 201204
  4. PROCHLORPERAZINE [Suspect]

REACTIONS (4)
  - Alopecia [Not Recovered/Not Resolved]
  - Headache [Recovered/Resolved]
  - Fatigue [Recovered/Resolved]
  - Decreased appetite [Recovered/Resolved]
